FAERS Safety Report 4676466-9 (Version None)
Quarter: 2005Q2

REPORT INFORMATION
  Report Type: 
  Country: None (occurrence: None)
  Receive Date: 20050525
  Receipt Date: 20050516
  Transmission Date: 20051028
  Serious: Yes (Hospitalization, Disabling)
  Sender: FDA-Public Use
  Company Number: 2005049065

PATIENT
  Age: 59 Year
  Sex: Female
  Weight: 47 kg

DRUGS (6)
  1. SULFASALAZINE [Suspect]
     Indication: SAPHO SYNDROME
     Dosage: 1000 MG (500 MG 1 IN 2 D), ORAL
     Route: 048
     Dates: start: 20030901, end: 20050216
  2. NORVASC [Concomitant]
  3. MICARDIS [Concomitant]
  4. PRAVASTATIN [Concomitant]
  5. SOLETON (ZALTOPROFEN) [Concomitant]
  6. METHYCOBAL (MECOBALAMIN) [Concomitant]

REACTIONS (11)
  - DIZZINESS [None]
  - HYPOAESTHESIA [None]
  - MONOPLEGIA [None]
  - MOVEMENT DISORDER [None]
  - MUSCULAR WEAKNESS [None]
  - MYELITIS TRANSVERSE [None]
  - MYELOPATHY [None]
  - NECK PAIN [None]
  - PAIN [None]
  - PAIN IN EXTREMITY [None]
  - SENSORY DISTURBANCE [None]
